FAERS Safety Report 9200664 (Version 2)
Quarter: 2013Q2

REPORT INFORMATION
  Report Type: Spontaneous
  Country: US (occurrence: US)
  Receive Date: 20130331
  Receipt Date: 20130523
  Transmission Date: 20140414
  Serious: No
  Sender: FDA-Public Use
  Company Number: US-ASTRAZENECA-2013SE13868

PATIENT
  Age: 75 Year
  Sex: Male
  Weight: 63.5 kg

DRUGS (3)
  1. PULMICORT FLEXHALER [Suspect]
     Indication: RESPIRATORY DISORDER
     Route: 055
     Dates: start: 20130202
  2. ASPIRIN [Concomitant]
     Indication: ANTICOAGULANT THERAPY
  3. TAMSULOSIN HTL [Concomitant]
     Indication: PROSTATOMEGALY

REACTIONS (2)
  - Wheezing [Unknown]
  - Circumstance or information capable of leading to medication error [Unknown]
